FAERS Safety Report 15015792 (Version 10)
Quarter: 2020Q1

REPORT INFORMATION
  Report Type: Spontaneous
  Country: PT (occurrence: PT)
  Receive Date: 20180615
  Receipt Date: 20200117
  Transmission Date: 20200409
  Serious: Yes (Life-Threatening, Hospitalization, Disabling)
  Sender: FDA-Public Use
  Company Number: PT-CELGENEUS-PRT-20180603214

PATIENT
  Age: 70 Year
  Sex: Male
  Weight: 57.4 kg

DRUGS (63)
  1. AZACITIDINE. [Suspect]
     Active Substance: AZACITIDINE
     Dosage: 75 MILLIGRAM/SQ. METER
     Route: 058
     Dates: end: 20180605
  2. VENETOCLAX. [Concomitant]
     Active Substance: VENETOCLAX
     Indication: ACUTE MYELOID LEUKAEMIA
     Dosage: 50 MILLIGRAM
     Route: 065
     Dates: start: 20180516, end: 20180516
  3. METOCLOPRAMIDE. [Concomitant]
     Active Substance: METOCLOPRAMIDE
     Route: 048
     Dates: start: 20180511, end: 20180521
  4. METOCLOPRAMIDE. [Concomitant]
     Active Substance: METOCLOPRAMIDE
     Route: 048
     Dates: start: 20180614, end: 20180618
  5. INSULIN [Concomitant]
     Active Substance: INSULIN NOS
     Indication: DIABETES MELLITUS
     Dosage: I UNIT
     Route: 058
     Dates: start: 20180430, end: 20180521
  6. FLAVOXATE [Concomitant]
     Active Substance: FLAVOXATE
     Route: 048
     Dates: start: 20180509, end: 20180510
  7. FLAVOXATE [Concomitant]
     Active Substance: FLAVOXATE
     Route: 048
     Dates: start: 20180511, end: 20180514
  8. MAGNESIUM SULFATE. [Concomitant]
     Active Substance: MAGNESIUM SULFATE
     Indication: SUPPLEMENTATION THERAPY
     Dosage: 10 MILLILITER
     Route: 041
     Dates: start: 20180509, end: 20180511
  9. MAGNESIUM SULFATE. [Concomitant]
     Active Substance: MAGNESIUM SULFATE
     Indication: HYPOMAGNESAEMIA
     Dosage: 10 MILLILITER
     Route: 041
     Dates: start: 20180604, end: 20180618
  10. CHLORHEXIDINE/CHLOROBUTANOL/NYSTATIN [Concomitant]
     Dosage: 1 GARGLE
     Route: 048
     Dates: start: 20180604, end: 20180618
  11. CAPHOSOL [Concomitant]
     Active Substance: CALCIUM CHLORIDE\SODIUM CHLORIDE\SODIUM PHOSPHATE, DIBASIC, ANHYDROUS\SODIUM PHOSPHATE, MONOBASIC, ANHYDROUS
     Indication: PROPHYLAXIS
     Dosage: 2 AMPOULE
     Route: 048
     Dates: start: 20180510, end: 20180521
  12. AMIODARONE [Concomitant]
     Active Substance: AMIODARONE
     Indication: ATRIAL FIBRILLATION
     Dosage: 300 MILLIGRAM
     Route: 041
     Dates: start: 20180515, end: 20180515
  13. AMIODARONE [Concomitant]
     Active Substance: AMIODARONE
     Dosage: 200 MILLIGRAM
     Route: 048
     Dates: start: 20180606, end: 20180618
  14. VENETOCLAX. [Concomitant]
     Active Substance: VENETOCLAX
     Dosage: 200 MILLIGRAM
     Route: 065
     Dates: start: 20180518, end: 20180604
  15. METOCLOPRAMIDE. [Concomitant]
     Active Substance: METOCLOPRAMIDE
     Indication: PROPHYLAXIS OF NAUSEA AND VOMITING
     Route: 041
     Dates: start: 20180430, end: 20180515
  16. LORAZEPAM. [Concomitant]
     Active Substance: LORAZEPAM
     Indication: PROPHYLAXIS
     Route: 048
     Dates: start: 20180518, end: 20180521
  17. PREDNISOLONE. [Concomitant]
     Active Substance: PREDNISOLONE
     Indication: DECREASED APPETITE
     Dosage: 10 MILLIGRAM
     Route: 048
     Dates: start: 20180608, end: 20180618
  18. VENETOCLAX. [Concomitant]
     Active Substance: VENETOCLAX
     Dosage: 100 MILLIGRAM
     Route: 065
     Dates: start: 20180517, end: 20180517
  19. METOCLOPRAMIDE. [Concomitant]
     Active Substance: METOCLOPRAMIDE
     Route: 048
     Dates: start: 20180527, end: 20180604
  20. CAPTOPRIL. [Concomitant]
     Active Substance: CAPTOPRIL
     Indication: HYPERTENSION
     Route: 060
     Dates: start: 20180430
  21. METFORMIN [Concomitant]
     Active Substance: METFORMIN HYDROCHLORIDE
     Dosage: 2 GRAM
     Route: 048
     Dates: start: 20180914
  22. TRAMADOL. [Concomitant]
     Active Substance: TRAMADOL
     Indication: PROPHYLAXIS
     Route: 041
     Dates: start: 20180508, end: 20180618
  23. CALCITRIOL. [Concomitant]
     Active Substance: CALCITRIOL
     Dosage: .25 MICROGRAM
     Route: 048
     Dates: start: 20180608, end: 20180618
  24. PANCREATINA [Concomitant]
     Indication: PANCREATICODUODENECTOMY
     Route: 048
     Dates: start: 20180507
  25. PANCREATINA [Concomitant]
     Indication: GASTRECTOMY
  26. ALUMINUM HYDROXIDE. [Concomitant]
     Active Substance: ALUMINUM HYDROXIDE
     Indication: PROPHYLAXIS
     Dosage: 240 MILLIGRAM
     Route: 048
     Dates: start: 20180511, end: 20180521
  27. AZACITIDINE. [Suspect]
     Active Substance: AZACITIDINE
     Indication: ACUTE MYELOID LEUKAEMIA
     Dosage: 75 MILLIGRAM/SQ. METER
     Route: 058
     Dates: start: 20180516, end: 20180522
  28. INSULIN [Concomitant]
     Active Substance: INSULIN NOS
     Dosage: I UNIT
     Route: 058
     Dates: start: 20180604, end: 20180618
  29. BROMAZEPAM [Concomitant]
     Active Substance: BROMAZEPAM
     Indication: PROPHYLAXIS
     Dosage: 3 MILLIGRAM
     Route: 048
     Dates: start: 20180430, end: 20180521
  30. CHLORHEXIDINE/CHLOROBUTANOL/NYSTATIN [Concomitant]
     Indication: PROPHYLAXIS
     Dosage: 1 GARGLE
     Route: 048
     Dates: start: 20180510, end: 20180521
  31. AZACITIDINE. [Suspect]
     Active Substance: AZACITIDINE
     Dosage: 75 MILLIGRAM/SQ. METER
     Route: 058
     Dates: start: 20180711
  32. HYDROXYCARBAMIDE [Concomitant]
     Active Substance: HYDROXYUREA
     Route: 048
     Dates: start: 20180509, end: 20180515
  33. MAGNESIUM SULFATE. [Concomitant]
     Active Substance: MAGNESIUM SULFATE
     Route: 041
     Dates: start: 20180702
  34. AMIODARONE [Concomitant]
     Active Substance: AMIODARONE
     Indication: ARRHYTHMIA PROPHYLAXIS
     Dosage: 200 MILLIGRAM
     Route: 048
     Dates: start: 20180516, end: 20180604
  35. MIRTAZAPINE. [Concomitant]
     Active Substance: MIRTAZAPINE
     Indication: PRODUCT USED FOR UNKNOWN INDICATION
     Dosage: 15 MILLIGRAM
     Route: 048
     Dates: start: 20180608
  36. ZOLPIDEM [Concomitant]
     Active Substance: ZOLPIDEM TARTRATE
     Indication: PROPHYLAXIS
     Dosage: 10 MILLIGRAM
     Route: 048
     Dates: start: 20180702
  37. PHYTOMENADIONE [Concomitant]
     Active Substance: PHYTONADIONE
     Indication: SUPPLEMENTATION THERAPY
     Route: 041
     Dates: start: 20180430, end: 20180504
  38. METFORMIN [Concomitant]
     Active Substance: METFORMIN HYDROCHLORIDE
     Indication: DIABETES MELLITUS
     Dosage: 2 GRAM
     Route: 048
     Dates: start: 20150104, end: 20180809
  39. PANCREATINA [Concomitant]
     Indication: GASTRIC CANCER
  40. LOPERAMIDE [Concomitant]
     Active Substance: LOPERAMIDE
     Indication: PROPHYLAXIS AGAINST DIARRHOEA
     Route: 048
     Dates: start: 20180507, end: 20180521
  41. CAPHOSOL [Concomitant]
     Active Substance: CALCIUM CHLORIDE\SODIUM CHLORIDE\SODIUM PHOSPHATE, DIBASIC, ANHYDROUS\SODIUM PHOSPHATE, MONOBASIC, ANHYDROUS
     Dosage: 2 AMPOULE
     Route: 048
     Dates: start: 20180604, end: 20180618
  42. ALUMINUM HYDROXIDE. [Concomitant]
     Active Substance: ALUMINUM HYDROXIDE
     Dosage: 240 MILLIGRAM
     Route: 048
     Dates: start: 20180522
  43. SODIUM ENOXAPARIN [Concomitant]
     Active Substance: ENOXAPARIN SODIUM
     Dosage: 80 MILLIGRAM
     Route: 058
     Dates: start: 20180515, end: 20180521
  44. TANSULOSINA [Concomitant]
     Indication: URINARY TRACT DISORDER PROPHYLAXIS
     Dosage: .4 MILLIGRAM
     Route: 048
     Dates: start: 20180514, end: 20180603
  45. LORAZEPAM. [Concomitant]
     Active Substance: LORAZEPAM
     Route: 048
     Dates: start: 20180604, end: 20180604
  46. VENETOCLAX. [Concomitant]
     Active Substance: VENETOCLAX
     Dosage: 400 MILLIGRAM
     Route: 065
     Dates: start: 20180711
  47. METOCLOPRAMIDE. [Concomitant]
     Active Substance: METOCLOPRAMIDE
     Route: 041
     Dates: start: 20180608, end: 20180613
  48. FLAVOXATE [Concomitant]
     Active Substance: FLAVOXATE
     Indication: URINARY TRACT DISORDER PROPHYLAXIS
     Route: 048
     Dates: start: 20180505, end: 20180508
  49. CLOTRIMAZOLE. [Concomitant]
     Active Substance: CLOTRIMAZOLE
     Indication: RECTAL LESION
     Dosage: 1 AMPOULE.
     Route: 061
     Dates: start: 20180604, end: 20180618
  50. DIAZEPAM. [Concomitant]
     Active Substance: DIAZEPAM
     Indication: PROPHYLAXIS
     Dosage: 5 MILLIGRAM
     Route: 048
     Dates: start: 20180606, end: 20180606
  51. ALLOPURINOL. [Concomitant]
     Active Substance: ALLOPURINOL
     Indication: PROPHYLAXIS
     Route: 048
     Dates: start: 20180430, end: 20180521
  52. RED BLOOD CELLS [Concomitant]
     Active Substance: HUMAN RED BLOOD CELL
     Indication: PRODUCT USED FOR UNKNOWN INDICATION
     Route: 041
     Dates: start: 20180508, end: 20180508
  53. PERINDOPRIL [Concomitant]
     Active Substance: PERINDOPRIL
     Indication: HYPERTENSION
     Route: 048
     Dates: start: 20180509
  54. BROMAZEPAM [Concomitant]
     Active Substance: BROMAZEPAM
     Dosage: 1.5 MILLIGRAM
     Route: 048
     Dates: start: 20180606, end: 20180618
  55. HYDROXYCARBAMIDE [Concomitant]
     Active Substance: HYDROXYUREA
     Indication: ACUTE MYELOID LEUKAEMIA
     Route: 048
     Dates: start: 20180501, end: 20180508
  56. TRAMADOL. [Concomitant]
     Active Substance: TRAMADOL
     Indication: PAIN IN EXTREMITY
     Route: 048
     Dates: start: 20180503, end: 20180521
  57. FUROSEMIDE. [Concomitant]
     Active Substance: FUROSEMIDE
     Indication: PAIN IN EXTREMITY
     Dosage: 40 MILLIGRAM
     Route: 048
     Dates: start: 20180504, end: 20180511
  58. FUROSEMIDE. [Concomitant]
     Active Substance: FUROSEMIDE
     Indication: PROPHYLAXIS
     Dosage: 40 MILLIGRAM
     Route: 048
     Dates: start: 20180606, end: 20180606
  59. CALCITRIOL. [Concomitant]
     Active Substance: CALCITRIOL
     Indication: SUPPLEMENTATION THERAPY
     Dosage: .25 MICROGRAM
     Route: 048
     Dates: start: 20180504, end: 20180521
  60. MAGNESIUM PIDOLATE [Concomitant]
     Active Substance: MAGNESIUM PIDOLATE
     Indication: SUPPLEMENTATION THERAPY
     Route: 048
     Dates: start: 20180504, end: 20180509
  61. SODIUM ENOXAPARIN [Concomitant]
     Active Substance: ENOXAPARIN SODIUM
     Indication: THROMBOSIS PROPHYLAXIS
     Dosage: 40 MILLIGRAM
     Route: 058
     Dates: start: 20180511, end: 20180514
  62. MEGESTROL [Concomitant]
     Active Substance: MEGESTROL
     Indication: DECREASED APPETITE
     Dosage: 160 MILLIGRAM
     Route: 048
     Dates: start: 20180605, end: 20180618
  63. POTASSIUM CHLORIDE. [Concomitant]
     Active Substance: POTASSIUM CHLORIDE
     Indication: SUPPLEMENTATION THERAPY
     Dosage: 30 MILLIEQUIVALENTS
     Route: 041
     Dates: start: 20180606, end: 20180618

REACTIONS (2)
  - Cellulitis of male external genital organ [Recovered/Resolved]
  - Pneumonia [Recovered/Resolved]

NARRATIVE: CASE EVENT DATE: 20180604
